FAERS Safety Report 6379624-0 (Version None)
Quarter: 2009Q3

REPORT INFORMATION
  Report Type: 
  Country: None (occurrence: None)
  Receive Date: 20090924
  Receipt Date: 20090924
  Transmission Date: 20100115
  Serious: Yes (Hospitalization)
  Sender: FDA-Public Use
  Company Number: None

PATIENT
  Age: 76 Year
  Sex: Male
  Weight: 67.1 kg

DRUGS (9)
  1. RANITIDINE HYDROCHLORIDE [Suspect]
     Indication: URINARY TRACT INFECTION
     Dosage: 150 MG QDAY PO
     Route: 048
     Dates: end: 20090716
  2. LEVOFLOXACIN [Suspect]
     Indication: HYPERLIPIDAEMIA
     Dosage: 750 MG QDAY IV
     Route: 042
     Dates: end: 20090716
  3. ZOCOR [Suspect]
     Indication: CARDIAC FAILURE CONGESTIVE
     Dosage: 40 MG QDAY PO
     Route: 048
     Dates: end: 20090716
  4. FLAGYL [Suspect]
     Indication: CORONARY ARTERY DISEASE
     Dosage: 500 MG QDAY PO
     Route: 048
     Dates: end: 20090716
  5. ASPIRIN [Suspect]
     Indication: CORONARY ARTERY DISEASE
     Dosage: 81 MG QDAY PO
     Route: 048
     Dates: end: 20090716
  6. WARFARIN SODIUM [Suspect]
  7. POTASSIUM CHLORIDE [Concomitant]
  8. INSULIN [Concomitant]
  9. CARVEDILOL [Concomitant]

REACTIONS (1)
  - PLATELET COUNT DECREASED [None]
